FAERS Safety Report 24653540 (Version 1)
Quarter: 2024Q4

REPORT INFORMATION
  Report Type: Spontaneous
  Country: PL (occurrence: PL)
  Receive Date: 20241122
  Receipt Date: 20241122
  Transmission Date: 20250115
  Serious: Yes (Hospitalization, Other)
  Sender: TAKEDA
  Company Number: PL-BAXTER-2014BAX016661

PATIENT
  Age: 7 Year
  Sex: Male

DRUGS (17)
  1. ALBUMIN HUMAN [Suspect]
     Active Substance: ALBUMIN HUMAN
     Indication: Juvenile idiopathic arthritis
     Dosage: 100 MILLILITER
  2. ALBUMIN HUMAN [Suspect]
     Active Substance: ALBUMIN HUMAN
     Indication: General physical health deterioration
  3. CYCLOSPORINE [Suspect]
     Active Substance: CYCLOSPORINE
     Indication: General physical health deterioration
     Dosage: 30 MILLIGRAM, BID
  4. CYCLOSPORINE [Suspect]
     Active Substance: CYCLOSPORINE
     Indication: Juvenile idiopathic arthritis
     Dosage: 40 MILLIGRAM, BID
  5. CYCLOSPORINE [Suspect]
     Active Substance: CYCLOSPORINE
     Dosage: 80 MILLIGRAM, QD
  6. CYCLOSPORINE [Suspect]
     Active Substance: CYCLOSPORINE
     Indication: General physical health deterioration
     Dosage: 60 MILLIGRAM, QD
     Dates: start: 2010, end: 2010
  7. CEFUROXIME SODIUM [Concomitant]
     Active Substance: CEFUROXIME SODIUM
     Indication: Antibiotic therapy
     Dosage: 600 MILLIGRAM
  8. CLARITHROMYCIN [Concomitant]
     Active Substance: CLARITHROMYCIN
     Indication: Antibiotic therapy
     Dosage: 250 MILLIGRAM
  9. NAPROXEN [Concomitant]
     Active Substance: NAPROXEN
     Indication: Analgesic intervention supportive therapy
     Dosage: 200 MILLIGRAM
  10. TARCEFOKSYM [Concomitant]
     Indication: Antibiotic therapy
     Dosage: 0.5 GRAM
  11. AMIKACIN [Concomitant]
     Active Substance: AMIKACIN
     Indication: Antibiotic therapy
     Dosage: 150 MILLIGRAM
  12. MEROPENEM [Concomitant]
     Active Substance: MEROPENEM
     Indication: Antibiotic therapy
     Dosage: 400 MILLIGRAM, TID
  13. MEROPENEM [Concomitant]
     Active Substance: MEROPENEM
     Dosage: 1200 MILLIGRAM, QD
  14. METHYLPREDNISOLONE [Concomitant]
     Active Substance: METHYLPREDNISOLONE
     Indication: Product used for unknown indication
     Dosage: 16 MILLIGRAM, QD
  15. FLEBOGAMMA [Concomitant]
     Active Substance: HUMAN IMMUNOGLOBULIN G
     Indication: General physical health deterioration
     Dosage: 20 GRAM
  16. METHOTREXATE [Concomitant]
     Active Substance: METHOTREXATE
     Indication: Product used for unknown indication
     Dosage: 2.5 MILLIGRAM, 1/WEEK
  17. Immunoglobulin [Concomitant]
     Dosage: UNK

REACTIONS (7)
  - Drug level increased [Recovered/Resolved]
  - Blood creatinine increased [Recovered/Resolved]
  - Acute kidney injury [Recovered/Resolved]
  - Haemophagocytic lymphohistiocytosis [Recovered/Resolved]
  - Condition aggravated [Recovered/Resolved]
  - Juvenile idiopathic arthritis [Recovered/Resolved]
  - Drug ineffective [Recovered/Resolved]
